FAERS Safety Report 12631887 (Version 2)
Quarter: 2016Q3

REPORT INFORMATION
  Report Type: Spontaneous
  Country: US (occurrence: US)
  Receive Date: 20160808
  Receipt Date: 20160808
  Transmission Date: 20161109
  Serious: No
  Sender: FDA-Public Use
  Company Number: US-BEH-2016061330

PATIENT
  Sex: Female
  Weight: 94 kg

DRUGS (50)
  1. HIZENTRA [Suspect]
     Active Substance: HUMAN IMMUNOGLOBULIN G
     Indication: IMMUNODEFICIENCY COMMON VARIABLE
     Route: 058
  2. HYDROCORTISONE. [Concomitant]
     Active Substance: HYDROCORTISONE
  3. NYSTATIN. [Concomitant]
     Active Substance: NYSTATIN
  4. SYNTHROID [Concomitant]
     Active Substance: LEVOTHYROXINE SODIUM
  5. TRAMADOL. [Concomitant]
     Active Substance: TRAMADOL
  6. AMOXICILLIN. [Concomitant]
     Active Substance: AMOXICILLIN
  7. TYLENOL [Concomitant]
     Active Substance: ACETAMINOPHEN
  8. MICARDIS [Concomitant]
     Active Substance: TELMISARTAN
  9. XOPENEX [Concomitant]
     Active Substance: LEVALBUTEROL HYDROCHLORIDE
  10. EXCEDRIN MIGRAINE [Concomitant]
     Active Substance: ACETAMINOPHEN\ASPIRIN\CAFFEINE
  11. ACETAMINOPHEN. [Concomitant]
     Active Substance: ACETAMINOPHEN
  12. LOMOTIL [Concomitant]
     Active Substance: ATROPINE SULFATE\DIPHENOXYLATE HYDROCHLORIDE
  13. ASTELIN [Concomitant]
     Active Substance: AZELASTINE HYDROCHLORIDE
  14. AVELOX [Concomitant]
     Active Substance: MOXIFLOXACIN HYDROCHLORIDE
  15. ADVAIR HFA [Concomitant]
     Active Substance: FLUTICASONE PROPIONATE\SALMETEROL XINAFOATE
  16. DIPHENHYDRAMINE. [Concomitant]
     Active Substance: DIPHENHYDRAMINE
  17. HYOSCYAMINE SULFATE. [Concomitant]
     Active Substance: HYOSCYAMINE SULFATE
  18. PHAZYME [Concomitant]
     Active Substance: DIMETHICONE 410
  19. BACTROBAN [Concomitant]
     Active Substance: MUPIROCIN\MUPIROCIN CALCIUM
  20. DIFLUCAN [Concomitant]
     Active Substance: FLUCONAZOLE
  21. PREDNISONE. [Concomitant]
     Active Substance: PREDNISONE
  22. CRESTOR [Concomitant]
     Active Substance: ROSUVASTATIN CALCIUM
  23. TRIAMTERENE-HCTZ [Concomitant]
     Active Substance: HYDROCHLOROTHIAZIDE\TRIAMTERENE
  24. PROAIR HFA [Concomitant]
     Active Substance: ALBUTEROL SULFATE
  25. ANUSOL-HC [Concomitant]
  26. SINGULAIR [Concomitant]
     Active Substance: MONTELUKAST SODIUM
  27. MELATONIN [Concomitant]
     Active Substance: MELATONIN
  28. PROAIR HFA [Concomitant]
     Active Substance: ALBUTEROL SULFATE
  29. HIZENTRA [Suspect]
     Active Substance: HUMAN IMMUNOGLOBULIN G
     Route: 058
  30. HIZENTRA [Suspect]
     Active Substance: HUMAN IMMUNOGLOBULIN G
     Route: 058
  31. CENTRUM SILVER [Concomitant]
     Active Substance: MINERALS\VITAMINS
  32. NIZATIDINE. [Concomitant]
     Active Substance: NIZATIDINE
  33. ZIAC [Concomitant]
     Active Substance: BISOPROLOL FUMARATE\HYDROCHLOROTHIAZIDE
  34. EPIPEN [Concomitant]
     Active Substance: EPINEPHRINE
  35. SENOKOT [Concomitant]
     Active Substance: SENNOSIDES
  36. KLOR-CON [Concomitant]
     Active Substance: POTASSIUM CHLORIDE
  37. ASCORBIC ACID. [Concomitant]
     Active Substance: ASCORBIC ACID
  38. CITRACAL +D [Concomitant]
  39. ZETONNA [Concomitant]
     Active Substance: CICLESONIDE
  40. NABUMETONE. [Concomitant]
     Active Substance: NABUMETONE
  41. ANTIVERT [Concomitant]
     Active Substance: MECLIZINE HYDROCHLORIDE
  42. ALLOPURINOL. [Concomitant]
     Active Substance: ALLOPURINOL
  43. OMEPRAZOLE. [Concomitant]
     Active Substance: OMEPRAZOLE
  44. CHLORZOXAZONE. [Concomitant]
     Active Substance: CHLORZOXAZONE
  45. HIZENTRA [Suspect]
     Active Substance: HUMAN IMMUNOGLOBULIN G
     Route: 058
  46. NEXIUM [Concomitant]
     Active Substance: ESOMEPRAZOLE MAGNESIUM
  47. FEXOFENADINE [Concomitant]
     Active Substance: FEXOFENADINE\FEXOFENADINE HYDROCHLORIDE
  48. BACTRIM DS [Concomitant]
     Active Substance: SULFAMETHOXAZOLE\TRIMETHOPRIM
  49. LEXAPRO [Concomitant]
     Active Substance: ESCITALOPRAM OXALATE
  50. ALPRAZOLAM. [Concomitant]
     Active Substance: ALPRAZOLAM

REACTIONS (1)
  - Sinusitis [Unknown]
